FAERS Safety Report 4320890-0 (Version None)
Quarter: 2004Q1

REPORT INFORMATION
  Report Type: 
  Country: None (occurrence: None)
  Receive Date: 20040322
  Receipt Date: 20040121
  Transmission Date: 20041129
  Serious: Yes (Life-Threatening, Hospitalization)
  Sender: FDA-Public Use
  Company Number: PHRM2004FR00610

PATIENT
  Age: 52 Year
  Sex: Male

DRUGS (7)
  1. MELLARIL [Suspect]
     Indication: DEPRESSION
     Dosage: 60 MG
     Route: 048
     Dates: start: 20040113, end: 20040113
  2. MELLARIL [Suspect]
     Dosage: 80 MG
     Route: 048
     Dates: start: 20040114, end: 20040114
  3. MELLARIL [Suspect]
     Dosage: 27 MG
     Route: 048
     Dates: start: 20040115, end: 20040115
  4. HALDOL [Suspect]
     Dosage: 4.5 MG
     Route: 048
     Dates: start: 20040113, end: 20040113
  5. HALDOL [Suspect]
     Dosage: 9 MG
     Route: 048
     Dates: start: 20040114, end: 20040114
  6. HALDOL [Suspect]
     Dosage: 3 MG
     Route: 048
     Dates: start: 20040115, end: 20040115
  7. IMOVANE [Concomitant]

REACTIONS (7)
  - AGRANULOCYTOSIS [None]
  - ANAEMIA [None]
  - DYSPNOEA [None]
  - FEBRILE BONE MARROW APLASIA [None]
  - PNEUMONIA PNEUMOCOCCAL [None]
  - PNEUMONIA STAPHYLOCOCCAL [None]
  - PYREXIA [None]
